FAERS Safety Report 23910493 (Version 3)
Quarter: 2024Q4

REPORT INFORMATION
  Report Type: Spontaneous
  Country: US (occurrence: US)
  Receive Date: 20240528
  Receipt Date: 20241125
  Transmission Date: 20250115
  Serious: No
  Sender: AVADEL CNS PHARMACEUTICALS, LLC
  Company Number: US-AVADEL CNS PHARMACEUTICALS, LLC-2024AVA00705

PATIENT
  Sex: Female
  Weight: 95.692 kg

DRUGS (15)
  1. LUMRYZ [Suspect]
     Active Substance: SODIUM OXYBATE
     Indication: Narcolepsy
     Dosage: 9 G, ONCE NIGHTLY AT 10 OR 10:30PM
     Route: 048
     Dates: start: 20240428, end: 20240521
  2. LUMRYZ [Suspect]
     Active Substance: SODIUM OXYBATE
     Indication: Cataplexy
     Dosage: 9 G
     Route: 048
     Dates: start: 2024
  3. ARMOUR THYROID [Concomitant]
     Active Substance: THYROID, PORCINE
     Dosage: 60 MG, ONCE DAILY
  4. ARMOUR THYROID [Concomitant]
     Active Substance: THYROID, PORCINE
     Dosage: 30 MG
  5. BUTALBITAL AND ACETAMINOPHEN [Concomitant]
     Active Substance: ACETAMINOPHEN\BUTALBITAL
     Dosage: UNK, AS NEEDED
  6. NEBIVOLOL [Concomitant]
     Active Substance: NEBIVOLOL
     Dosage: 10 MG, ONCE DAILY
  7. OMEPRAZOLE [Concomitant]
     Active Substance: OMEPRAZOLE
     Dosage: 20 MG, ONCE DAILY
  8. QULIPTA [Concomitant]
     Active Substance: ATOGEPANT
     Dosage: 60 MG, ONCE DAILY
  9. MELOXICAM [Concomitant]
     Active Substance: MELOXICAM
     Dosage: 15 MG, ONCE NIGHTLY
     Dates: start: 202404
  10. VITAMINS NOS [Concomitant]
     Active Substance: VITAMINS
     Dosage: UNK, ONCE DAILY
  11. UNSPECIFIED HAIR AND NAILS VITAMIN [Concomitant]
     Dosage: UNK, ONCE DAILY
  12. BIOTIN [Concomitant]
     Active Substance: BIOTIN
     Dosage: UNK, ONCE DAILY
  13. CYCLOBENZAPRINE [Concomitant]
     Active Substance: CYCLOBENZAPRINE
     Dosage: 10 MG
  14. FAMOTIDINE [Concomitant]
     Active Substance: FAMOTIDINE
     Dosage: 20 MG
  15. LANSOPRAZOLE [Concomitant]
     Active Substance: LANSOPRAZOLE
     Dosage: 30 MG

REACTIONS (4)
  - Middle insomnia [Unknown]
  - Insomnia [Not Recovered/Not Resolved]
  - Terminal insomnia [Unknown]
  - Hunger [Unknown]

NARRATIVE: CASE EVENT DATE: 20240101
